FAERS Safety Report 14950211 (Version 1)
Quarter: 2018Q3

REPORT INFORMATION
  Report Type: Spontaneous
  Country: US (occurrence: US)
  Receive Date: 20180530
  Receipt Date: 20180530
  Transmission Date: 20181010
  Serious: No
  Sender: FDA-Public Use
  Company Number: US-MACLEODS PHARMACEUTICALS US LTD-MAC2018012155

PATIENT

DRUGS (1)
  1. METFORMIN HYDROCHLORIDE 500MG TABLET [Suspect]
     Active Substance: METFORMIN HYDROCHLORIDE
     Indication: DIABETES MELLITUS
     Dosage: 2 DOSAGE FORM, BID (TWO 500 MG TABLETS IN THE MORNING AND TWO 500 MG TABLETS IN THE NIGHT)
     Route: 048

REACTIONS (1)
  - Diarrhoea [Unknown]
